FAERS Safety Report 4637983-0 (Version None)
Quarter: 2005Q2

REPORT INFORMATION
  Report Type: 
  Country: None (occurrence: None)
  Receive Date: 20050415
  Receipt Date: 20050407
  Transmission Date: 20051028
  Serious: Yes (Other)
  Sender: FDA-Public Use
  Company Number: ITWYE564707APR05

PATIENT
  Age: 74 Year
  Sex: Female

DRUGS (7)
  1. TAZOCIN (PIPERACILLIN/TAZOBACTAM, INJECTION) [Suspect]
     Indication: PSEUDOMONAS INFECTION
     Dosage: INTRAVENOUS
     Route: 042
     Dates: start: 20050321, end: 20050323
  2. BECOZYN (VITAMIN B NOS) [Concomitant]
  3. ENAPREN (ENALAPRIL MALEATE) [Concomitant]
  4. OMEPRAZOLE [Concomitant]
  5. TRAMADOL HCL [Concomitant]
  6. EN (DELORAZEPAM) [Concomitant]
  7. LASIX [Concomitant]

REACTIONS (1)
  - HENOCH-SCHONLEIN PURPURA [None]
